FAERS Safety Report 7641599-1 (Version None)
Quarter: 2011Q3

REPORT INFORMATION
  Report Type: 
  Country: None (occurrence: None)
  Receive Date: 20110728
  Receipt Date: 20110721
  Transmission Date: 20111222
  Serious: Yes (Other)
  Sender: FDA-Public Use
  Company Number: US-BAYER-201035057NA

PATIENT
  Age: 21 Year
  Sex: Female
  Weight: 65.76 kg

DRUGS (4)
  1. IBUPROFEN [Concomitant]
  2. YASMIN [Suspect]
     Indication: PREMENSTRUAL SYNDROME
     Dosage: UNK
     Dates: start: 20050801, end: 20080601
  3. COLACE [Concomitant]
     Dosage: UNK
     Dates: start: 20050509
  4. DROSPIRENONE AND ETHINYL ESTRADIOL [Suspect]
     Indication: PREMENSTRUAL SYNDROME
     Dosage: UNK
     Dates: start: 20080601, end: 20090101

REACTIONS (2)
  - GALLBLADDER DISORDER [None]
  - ABDOMINAL PAIN UPPER [None]
